FAERS Safety Report 4432583-X (Version None)
Quarter: 2004Q3

REPORT INFORMATION
  Report Type: 
  Country: None (occurrence: None)
  Receive Date: 20040820
  Receipt Date: 20040806
  Transmission Date: 20050211
  Serious: Yes (Other)
  Sender: FDA-Public Use
  Company Number: 2004054438

PATIENT
  Sex: Male
  Weight: 130 kg

DRUGS (7)
  1. DILANTIN [Suspect]
     Indication: CONVULSION
     Dosage: 300 MG (300 MG, 1 IN 1 D), ORAL
     Route: 048
  2. CLOBETASOL (CLOBETASOL) [Suspect]
     Indication: ECZEMA
  3. ALENDRONATE SODIUM [Concomitant]
  4. TETRACYCLINE [Concomitant]
  5. NICOTONIC ACID (NICOTONIC ACID) [Concomitant]
  6. TRIAMCINOLONE ACETONIDE [Concomitant]
  7. SERETIDE MITE (FLUTICASONE PROPIONATE, SALMETEROL XINAFOATE) [Concomitant]

REACTIONS (4)
  - CONTUSION [None]
  - ECZEMA [None]
  - PEMPHIGOID [None]
  - SKIN ATROPHY [None]
